FAERS Safety Report 8204607-5 (Version None)
Quarter: 2012Q1

REPORT INFORMATION
  Report Type: 
  Country: None (occurrence: None)
  Receive Date: 20120313
  Receipt Date: 20120310
  Transmission Date: 20120608
  Serious: Yes (Other)
  Sender: FDA-Public Use
  Company Number: US-PFIZER INC-2012063709

PATIENT
  Sex: Female

DRUGS (1)
  1. IBUPROFEN (ADVIL) [Suspect]
     Indication: OROPHARYNGEAL PAIN
     Dosage: 200 MG, AS NEEDED
     Route: 048
     Dates: start: 20120310, end: 20120310

REACTIONS (5)
  - DYSPNOEA [None]
  - HYPOAESTHESIA [None]
  - EXPIRED DRUG ADMINISTERED [None]
  - CHEST DISCOMFORT [None]
  - LOSS OF CONSCIOUSNESS [None]
